FAERS Safety Report 9395574 (Version 2)
Quarter: 2013Q4

REPORT INFORMATION
  Report Type: Spontaneous
  Country: GB (occurrence: GB)
  Receive Date: 20130711
  Receipt Date: 20131112
  Transmission Date: 20140711
  Serious: Yes (Other)
  Sender: FDA-Public Use
  Company Number: PHHY2013GB069802

PATIENT
  Age: 43 Year
  Sex: Male

DRUGS (3)
  1. VENTOLIN [Suspect]
     Dosage: 1 PUFF AS REQUIRED
     Route: 055
  2. SALMETEROL/FLUTICASONPROPIONAAT [Suspect]
     Dosage: 2 PUFF TWICE PER DAY
     Route: 055
  3. MONTELUKAST COMPARATOR [Suspect]
     Dosage: 10 MG, QHS
     Route: 065

REACTIONS (5)
  - Pigment dispersion syndrome [Unknown]
  - Blebitis [Unknown]
  - Tenon^s cyst [Unknown]
  - Diplopia [Unknown]
  - Dysaesthesia [Unknown]
